FAERS Safety Report 11680843 (Version 2)
Quarter: 2015Q4

REPORT INFORMATION
  Report Type: Spontaneous
  Country: US (occurrence: US)
  Receive Date: 20151027
  Receipt Date: 20151104
  Transmission Date: 20160304
  Serious: No
  Sender: FDA-Public Use
  Company Number: US-ELI_LILLY_AND_COMPANY-US201004007317

PATIENT
  Sex: Female

DRUGS (1)
  1. FORTEO [Suspect]
     Active Substance: TERIPARATIDE
     Indication: OSTEOPOROSIS
     Dosage: 20 UG, DAILY (1/D)
     Route: 065
     Dates: start: 201002

REACTIONS (8)
  - Tooth extraction [Unknown]
  - Device failure [Unknown]
  - Ageusia [Unknown]
  - Intentional product misuse [Unknown]
  - Joint swelling [Unknown]
  - Adverse drug reaction [Unknown]
  - Dry mouth [Unknown]
  - Weight decreased [Unknown]
